FAERS Safety Report 8108341-1 (Version None)
Quarter: 2012Q1

REPORT INFORMATION
  Report Type: 
  Country: None (occurrence: None)
  Receive Date: 20120202
  Receipt Date: 20120124
  Transmission Date: 20120608
  Serious: Yes (Hospitalization, Other)
  Sender: FDA-Public Use
  Company Number: PHHY2010CA65029

PATIENT
  Sex: Female

DRUGS (2)
  1. CHEMOTHERAPEUTICS NOS [Concomitant]
  2. SANDOSTATIN LAR [Suspect]
     Indication: NEUROENDOCRINE CARCINOMA
     Dosage: 30 MG, EVERY 4 WEEKS
     Route: 030
     Dates: start: 20100805, end: 20101221

REACTIONS (8)
  - TUMOUR HAEMORRHAGE [None]
  - ASTHENIA [None]
  - NAUSEA [None]
  - NEOPLASM MALIGNANT [None]
  - MALAISE [None]
  - FATIGUE [None]
  - PROCEDURAL COMPLICATION [None]
  - WEIGHT DECREASED [None]
